FAERS Safety Report 5946923-3 (Version None)
Quarter: 2008Q4

REPORT INFORMATION
  Report Type: 
  Country: None (occurrence: None)
  Receive Date: 20081110
  Receipt Date: 20081030
  Transmission Date: 20090506
  Serious: Yes (Hospitalization)
  Sender: FDA-Public Use
  Company Number: JP-ASTRAZENECA-2008AP08157

PATIENT
  Age: 385 Month
  Sex: Male

DRUGS (7)
  1. QUETIAPINE FUMARATE [Suspect]
     Indication: BIPOLAR DISORDER
     Route: 048
     Dates: start: 20080423
  2. QUETIAPINE FUMARATE [Suspect]
     Route: 048
  3. QUETIAPINE FUMARATE [Suspect]
     Route: 048
  4. ROHYPNOL [Concomitant]
     Indication: BIPOLAR DISORDER
     Route: 048
     Dates: start: 20080423
  5. LIMAS [Concomitant]
     Indication: BIPOLAR DISORDER
     Route: 048
     Dates: start: 20080423
  6. MEILAX [Concomitant]
     Indication: BIPOLAR DISORDER
     Route: 048
     Dates: start: 20080423
  7. LUDIOMIL [Concomitant]
     Indication: BIPOLAR DISORDER
     Route: 048
     Dates: start: 20080423

REACTIONS (2)
  - GAIT DISTURBANCE [None]
  - HICCUPS [None]
